FAERS Safety Report 8491541-9 (Version None)
Quarter: 2012Q3

REPORT INFORMATION
  Report Type: 
  Country: None (occurrence: None)
  Receive Date: 20120706
  Receipt Date: 20120628
  Transmission Date: 20120928
  Serious: Yes (Hospitalization, Other)
  Sender: FDA-Public Use
  Company Number: JP-JNJFOC-20120212669

PATIENT
  Age: 67 Year
  Sex: Male

DRUGS (4)
  1. TRAMADOL HCL [Suspect]
     Indication: GOUT
     Dosage: 3DF 1 PER DAY
     Route: 048
     Dates: start: 20120118, end: 20120222
  2. PREDNISOLONE SODIUM SUCCINATE INJ [Concomitant]
     Dosage: 1 PER 1 DAY
     Route: 048
  3. ALLOPURINOL [Concomitant]
     Dosage: 1 PER 1 DAY
     Route: 048
  4. RABEPRAZOLE SODIUM [Concomitant]
     Dosage: 1 PER 1 DAY
     Route: 048

REACTIONS (1)
  - EOSINOPHILIC PNEUMONIA [None]
